FAERS Safety Report 8917791 (Version 11)
Quarter: 2014Q3

REPORT INFORMATION
  Report Type: Report from Study
  Country: US (occurrence: US)
  Receive Date: 20121120
  Receipt Date: 20140902
  Transmission Date: 20150326
  Serious: Yes (Death, Other)
  Sender: FDA-Public Use
  Company Number: US-PFIZER INC-2012278828

PATIENT
  Age: 47 Year
  Sex: Female
  Weight: 80.2 kg

DRUGS (1)
  1. TOFACITINIB CITRATE [Suspect]
     Active Substance: TOFACITINIB CITRATE
     Indication: PSORIASIS
     Dosage: 5 MG, 2X/DAY
     Route: 048
     Dates: start: 20120131, end: 20120902

REACTIONS (1)
  - Mycosis fungoides [Fatal]

NARRATIVE: CASE EVENT DATE: 20121105
